FAERS Safety Report 7002473-7 (Version None)
Quarter: 2010Q3

REPORT INFORMATION
  Report Type: 
  Country: None (occurrence: None)
  Receive Date: 20100920
  Receipt Date: 20090828
  Transmission Date: 20110219
  Serious: No
  Sender: FDA-Public Use
  Company Number: US-ASTRAZENECA-2009UW03761

PATIENT
  Age: 53 Year
  Sex: Female
  Weight: 88 kg

DRUGS (8)
  1. SEROQUEL [Suspect]
     Indication: DEPRESSION
     Route: 048
     Dates: start: 20000101, end: 20060101
  2. SEROQUEL [Suspect]
     Indication: ANXIETY
     Route: 048
     Dates: start: 20000101, end: 20060101
  3. SEROQUEL [Suspect]
     Indication: BORDERLINE PERSONALITY DISORDER
     Route: 048
     Dates: start: 20000101, end: 20060101
  4. KLONOPIN [Concomitant]
     Indication: DEPRESSION
     Dates: start: 19940101
  5. CLOZARIL [Concomitant]
     Dates: start: 19940101
  6. RISPERDAL [Concomitant]
     Dates: start: 19940101
  7. ZYPREXA [Concomitant]
     Dates: start: 19990101
  8. SYMBYAX [Concomitant]
     Dates: start: 19990101

REACTIONS (4)
  - INTESTINAL FUNCTIONAL DISORDER [None]
  - JOINT INJURY [None]
  - SARCOIDOSIS [None]
  - TYPE 2 DIABETES MELLITUS [None]
